FAERS Safety Report 9548897 (Version 2)
Quarter: 2013Q3

REPORT INFORMATION
  Report Type: Spontaneous
  Country: CN (occurrence: CN)
  Receive Date: 20130924
  Receipt Date: 20130926
  Transmission Date: 20140515
  Serious: Yes (Other)
  Sender: FDA-Public Use
  Company Number: CN-PFIZER INC-2013270944

PATIENT
  Sex: 0

DRUGS (1)
  1. CADUET [Suspect]
     Dosage: 1 DF, DAILY
     Route: 048
     Dates: start: 2012

REACTIONS (2)
  - Muscle rupture [Unknown]
  - Muscle injury [Unknown]
